FAERS Safety Report 12336539 (Version 1)
Quarter: 2016Q2

REPORT INFORMATION
  Report Type: Spontaneous
  Country: US (occurrence: US)
  Receive Date: 20160505
  Receipt Date: 20160505
  Transmission Date: 20160815
  Serious: No
  Sender: FDA-Public Use
  Company Number: US-BAYER-2016-081925

PATIENT
  Age: 3 Year
  Sex: Female

DRUGS (2)
  1. BENADRYL ALLERGY/COLD [Concomitant]
     Indication: HYPERSENSITIVITY
  2. CHILDREN CLARITIN ALLERGY [Suspect]
     Active Substance: LORATADINE

REACTIONS (1)
  - Fatigue [None]
